FAERS Safety Report 7799652-8 (Version None)
Quarter: 2011Q4

REPORT INFORMATION
  Report Type: 
  Country: None (occurrence: None)
  Receive Date: 20111006
  Receipt Date: 20110928
  Transmission Date: 20120403
  Serious: Yes (Hospitalization, Other)
  Sender: FDA-Public Use
  Company Number: PHHY2011CA78293

PATIENT
  Age: 41 Year
  Sex: Female

DRUGS (6)
  1. HALOPERIDOL DECANOATE [Concomitant]
  2. LAMOTRIGINE [Suspect]
     Dosage: 150 MG,
     Dates: start: 20070101
  3. CLOZAPINE [Suspect]
     Indication: SCHIZOPHRENIA
     Route: 048
     Dates: start: 20020101, end: 20100101
  4. RISPERDAL [Concomitant]
  5. LAMOTRIGINE [Suspect]
     Dosage: 250 MG,
  6. RISPERIDONE [Concomitant]

REACTIONS (6)
  - WHITE BLOOD CELL COUNT DECREASED [None]
  - NEUTROPHIL COUNT DECREASED [None]
  - EXTRAPYRAMIDAL DISORDER [None]
  - PSYCHIATRIC SYMPTOM [None]
  - AGRANULOCYTOSIS [None]
  - SEDATION [None]
